FAERS Safety Report 9638958 (Version 2)
Quarter: 2013Q4

REPORT INFORMATION
  Report Type: Spontaneous
  Country: US (occurrence: US)
  Receive Date: 20131022
  Receipt Date: 20131022
  Transmission Date: 20140711
  Serious: No
  Sender: FDA-Public Use
  Company Number: US-BRISTOL-MYERS SQUIBB COMPANY-19083047

PATIENT
  Age: 71 Year
  Sex: Female

DRUGS (2)
  1. ELIQUIS [Suspect]
     Indication: ATRIAL FIBRILLATION
     Dosage: LAST DOSE: 08JUL2013
     Route: 048
     Dates: start: 20130617
  2. AMIODARONE [Suspect]
     Dates: start: 20130617

REACTIONS (2)
  - Abdominal discomfort [Unknown]
  - Dizziness [Unknown]
